FAERS Safety Report 6768751-1 (Version None)
Quarter: 2010Q2

REPORT INFORMATION
  Report Type: 
  Country: None (occurrence: None)
  Receive Date: 20100611
  Receipt Date: 20100527
  Transmission Date: 20101027
  Serious: Yes (Hospitalization, Other)
  Sender: FDA-Public Use
  Company Number: TPA2009A03974

PATIENT
  Age: 81 Year
  Sex: Male
  Weight: 90.7194 kg

DRUGS (22)
  1. ACTOS [Suspect]
     Indication: DIABETES MELLITUS
     Dosage: 15 MG, 1 IN 1 D, PER ORAL
     Route: 048
     Dates: start: 20041015, end: 20050707
  2. KETOCONAZOLE [Suspect]
     Dates: end: 20050614
  3. CORTISONE (CORTISONE) [Suspect]
     Dosage: 25 MG, PER ORAL
     Route: 048
  4. ALDACTONE [Concomitant]
  5. RISPERDAL [Concomitant]
  6. ARICEPT [Concomitant]
  7. SINGULAIR [Concomitant]
  8. ASPIRIN [Concomitant]
  9. NASONEX [Concomitant]
  10. PINDOLOL [Concomitant]
  11. PLAVIX [Concomitant]
  12. INSULIN (INSULIN) [Concomitant]
  13. FLUOXETINE [Concomitant]
  14. LASIX [Concomitant]
  15. NIASPAN [Concomitant]
  16. ACETAMINOPHEN [Concomitant]
  17. PROTONIX [Concomitant]
  18. VISKEN [Concomitant]
  19. PROZAC [Concomitant]
  20. NIACIN [Concomitant]
  21. NAMENDA [Concomitant]
  22. HORMONAL THERAPY (HORMONES AND RELATED AGENTS) [Concomitant]

REACTIONS (18)
  - BACK PAIN [None]
  - CARDIAC DISORDER [None]
  - DEFORMITY [None]
  - DEHYDRATION [None]
  - GAIT DISTURBANCE [None]
  - HEPATITIS CHOLESTATIC [None]
  - HYPOAESTHESIA [None]
  - INTERVERTEBRAL DISC PROTRUSION [None]
  - LUMBAR SPINAL STENOSIS [None]
  - MENTAL STATUS CHANGES [None]
  - MUSCULAR WEAKNESS [None]
  - NEUROPATHY PERIPHERAL [None]
  - PERIPHERAL SENSORY NEUROPATHY [None]
  - POLYNEUROPATHY [None]
  - PROSTATE CANCER [None]
  - SPINAL COMPRESSION FRACTURE [None]
  - URINARY INCONTINENCE [None]
  - WEIGHT DECREASED [None]
